FAERS Safety Report 10851779 (Version 1)
Quarter: 2015Q1

REPORT INFORMATION
  Report Type: Spontaneous
  Country: US (occurrence: US)
  Receive Date: 20150222
  Receipt Date: 20150222
  Transmission Date: 20150721
  Serious: No
  Sender: FDA-Public Use
  Company Number: US-ALLERGAN-1411385US

PATIENT
  Age: 52 Year
  Sex: Female

DRUGS (2)
  1. LISINOPRIL. [Concomitant]
     Active Substance: LISINOPRIL
     Indication: HYPERTENSION
     Dosage: UNK UNK, QOD
     Route: 048
  2. BOTOX [Suspect]
     Active Substance: ONABOTULINUMTOXINA
     Indication: BRUXISM
     Dosage: 24 UNITS, SINGLE
     Dates: start: 20140425, end: 20140425

REACTIONS (4)
  - Facial paresis [Unknown]
  - Muscle tightness [Not Recovered/Not Resolved]
  - Off label use [Unknown]
  - Skin wrinkling [Unknown]
